FAERS Safety Report 7579494-9 (Version None)
Quarter: 2011Q2

REPORT INFORMATION
  Report Type: 
  Country: None (occurrence: None)
  Receive Date: 20110629
  Receipt Date: 20081001
  Transmission Date: 20111010
  Serious: Yes (Other)
  Sender: FDA-Public Use
  Company Number: US-BAYER-2011-006105

PATIENT
  Age: 68 Year
  Sex: Male
  Weight: 95 kg

DRUGS (2)
  1. TRASYLOL [Suspect]
     Indication: AORTIC ANEURYSM REPAIR
     Dosage: UNK
     Route: 042
     Dates: start: 20050608
  2. TRASYLOL [Suspect]
     Indication: ENDARTERECTOMY

REACTIONS (5)
  - INJURY [None]
  - PAIN [None]
  - RENAL FAILURE [None]
  - EMOTIONAL DISTRESS [None]
  - ANXIETY [None]
